FAERS Safety Report 8960520 (Version 1)
Quarter: 2012Q4

REPORT INFORMATION
  Report Type: Spontaneous
  Country: RU (occurrence: None)
  Receive Date: 20121203
  Receipt Date: 20121203
  Transmission Date: 20130627
  Serious: No
  Sender: FDA-Public Use
  Company Number: 1210RUS003772

PATIENT

DRUGS (1)
  1. CEFTIBUTEN [Suspect]
     Indication: SALMONELLOSIS

REACTIONS (1)
  - Drug ineffective [None]
